FAERS Safety Report 11120263 (Version 1)
Quarter: 2015Q2

REPORT INFORMATION
  Report Type: Spontaneous
  Country: FR (occurrence: FR)
  Receive Date: 20150518
  Receipt Date: 20150518
  Transmission Date: 20150821
  Serious: Yes (Death, Other)
  Sender: FDA-Public Use
  Company Number: FR-MYLANLABS-2015M1016049

PATIENT

DRUGS (3)
  1. EPINEPHRINE. [Suspect]
     Active Substance: EPINEPHRINE
     Dosage: 1 MICROG/KG
     Route: 050
  2. EPINEPHRINE. [Suspect]
     Active Substance: EPINEPHRINE
     Dosage: 0.3 MG/H
     Route: 050
  3. SODIUM CHLORIDE. [Concomitant]
     Active Substance: SODIUM CHLORIDE
     Dosage: 15 ML/K OF 0.9%
     Route: 065

REACTIONS (3)
  - Multi-organ failure [Fatal]
  - Medical device site extravasation [Unknown]
  - Peripheral ischaemia [Unknown]
